FAERS Safety Report 17280067 (Version 1)
Quarter: 2020Q1

REPORT INFORMATION
  Report Type: Spontaneous
  Country: US (occurrence: US)
  Receive Date: 20200117
  Receipt Date: 20200117
  Transmission Date: 20200409
  Serious: No
  Sender: FDA-Public Use
  Company Number: US-AMGEN-USASP2020007147

PATIENT
  Sex: Female

DRUGS (1)
  1. EVENITY [Suspect]
     Active Substance: ROMOSOZUMAB-AQQG
     Indication: OSTEOPOROSIS POSTMENOPAUSAL
     Dosage: UNK
     Route: 065
     Dates: start: 20191120, end: 20191219

REACTIONS (3)
  - Liver function test increased [Unknown]
  - Aspartate aminotransferase increased [Unknown]
  - Hypocalcaemia [Unknown]

NARRATIVE: CASE EVENT DATE: 2019
